FAERS Safety Report 5699157-4 (Version None)
Quarter: 2008Q2

REPORT INFORMATION
  Report Type: 
  Country: None (occurrence: None)
  Receive Date: 20080404
  Receipt Date: 20080404
  Transmission Date: 20081010
  Serious: Yes (Hospitalization)
  Sender: FDA-Public Use
  Company Number: None

PATIENT
  Age: 46 Year
  Sex: Female
  Weight: 58.514 kg

DRUGS (1)
  1. NUVARING [Suspect]
     Dosage: MONTHLY VAG
     Route: 067
     Dates: start: 20060701, end: 20070115

REACTIONS (1)
  - PULMONARY EMBOLISM [None]
